FAERS Safety Report 4718260-6 (Version None)
Quarter: 2005Q3

REPORT INFORMATION
  Report Type: 
  Country: None (occurrence: None)
  Receive Date: 20050714
  Receipt Date: 20041028
  Transmission Date: 20060218
  Serious: Yes (Other)
  Sender: FDA-Public Use
  Company Number: HQWYE222003NOV04

PATIENT
  Age: 51 Year
  Sex: Male

DRUGS (3)
  1. ADVIL [Suspect]
  2. ATENOLOL [Concomitant]
  3. ALLOPURINOL [Concomitant]

REACTIONS (2)
  - ANAPHYLACTIC REACTION [None]
  - SYNCOPE [None]
